FAERS Safety Report 11415726 (Version 1)
Quarter: 2015Q3

REPORT INFORMATION
  Report Type: Report from Study
  Country: BR (occurrence: BR)
  Receive Date: 20150825
  Receipt Date: 20150825
  Transmission Date: 20151125
  Serious: Yes (Other)
  Sender: FDA-Public Use
  Company Number: PHHY2015BR102032

PATIENT
  Sex: Male
  Weight: 42 kg

DRUGS (3)
  1. EXJADE [Suspect]
     Active Substance: DEFERASIROX
     Indication: SICKLE CELL ANAEMIA
     Dosage: 10 MG/KG, QD (1 TABLET DAILY)
     Route: 065
  2. HIDROXIUREA [Concomitant]
     Active Substance: HYDROXYUREA
     Dosage: 2 DF, UNK (IN THE WEEKENDS)
  3. HIDROXIUREA [Concomitant]
     Active Substance: HYDROXYUREA
     Indication: PRODUCT USED FOR UNKNOWN INDICATION
     Dosage: 3 DF, UNK (UNTIL FRIDAY)
     Route: 065

REACTIONS (3)
  - Brain hypoxia [Unknown]
  - Haemoglobin S increased [Unknown]
  - Cerebrovascular accident [Unknown]
